FAERS Safety Report 6804259-2 (Version None)
Quarter: 2010Q2

REPORT INFORMATION
  Report Type: 
  Country: None (occurrence: None)
  Receive Date: 20100628
  Receipt Date: 20070224
  Transmission Date: 20101027
  Serious: No
  Sender: FDA-Public Use
  Company Number: US-PFIZER INC-2007015456

PATIENT
  Age: 12 Year
  Sex: Male
  Weight: 72.57 kg

DRUGS (1)
  1. GEODON [Suspect]
     Indication: ASPERGER'S DISORDER
     Dates: start: 20061101

REACTIONS (3)
  - DRUG INEFFECTIVE [None]
  - EMOTIONAL DISORDER [None]
  - MOOD SWINGS [None]
